FAERS Safety Report 10310014 (Version 2)
Quarter: 2014Q3

REPORT INFORMATION
  Report Type: Spontaneous
  Country: DE (occurrence: DE)
  Receive Date: 20140717
  Receipt Date: 20140804
  Transmission Date: 20150326
  Serious: Yes (Congenital Anomaly)
  Sender: FDA-Public Use
  Company Number: PHHY2014DE085725

PATIENT
  Age: 1 Day
  Sex: Female
  Weight: 3.66 kg

DRUGS (5)
  1. TASIGNA [Suspect]
     Active Substance: NILOTINIB
     Indication: CHRONIC MYELOID LEUKAEMIA
     Dosage: 600 MG, PER BY USED FATHER VIA ORAL ROUTE
     Route: 064
     Dates: start: 20130508, end: 20140213
  2. FOLSAEURE [Concomitant]
     Active Substance: FOLIC ACID
     Indication: PROPHYLAXIS OF NEURAL TUBE DEFECT
     Route: 064
  3. L-THYROXIN [Concomitant]
     Active Substance: LEVOTHYROXINE SODIUM
     Indication: HYPOTHYROIDISM
     Dosage: 75 UG, PER DAY  USED BY MOTHER BY ORAL ROUTE
     Route: 064
     Dates: start: 20130508, end: 20140213
  4. GLIVEC [Concomitant]
     Active Substance: IMATINIB MESYLATE
     Indication: CHRONIC MYELOID LEUKAEMIA
     Route: 064
  5. XANAFLU [Concomitant]
     Active Substance: INFLUENZA VIRUS VACCINE
     Indication: IMMUNISATION
     Route: 064
     Dates: start: 20130918, end: 20130918

REACTIONS (4)
  - Atrial septal defect [Not Recovered/Not Resolved]
  - Foetal exposure during pregnancy [None]
  - Ventricular septal defect [Not Recovered/Not Resolved]
  - Exposure via father [None]

NARRATIVE: CASE EVENT DATE: 20140213
